FAERS Safety Report 9607346 (Version 1)
Quarter: 2013Q4

REPORT INFORMATION
  Report Type: Report from Study
  Country: AU (occurrence: AU)
  Receive Date: 20131009
  Receipt Date: 20131009
  Transmission Date: 20140711
  Serious: Yes (Hospitalization)
  Sender: FDA-Public Use
  Company Number: AU-BAYER-2013-121263

PATIENT
  Age: 67 Year
  Sex: Female

DRUGS (1)
  1. BETAFERON [Suspect]
     Indication: MULTIPLE SCLEROSIS
     Dosage: 250 MCG/ML, QOD
     Route: 058
     Dates: start: 20060101

REACTIONS (3)
  - Arterial occlusive disease [Recovered/Resolved]
  - Dyspnoea [Recovered/Resolved]
  - Injection site mass [Not Recovered/Not Resolved]
